FAERS Safety Report 7903456-2 (Version None)
Quarter: 2011Q4

REPORT INFORMATION
  Report Type: 
  Country: None (occurrence: None)
  Receive Date: 20111109
  Receipt Date: 20111102
  Transmission Date: 20120403
  Serious: Yes (Death)
  Sender: FDA-Public Use
  Company Number: AU-JNJFOC-20100304227

PATIENT
  Age: 32 Year
  Sex: Female

DRUGS (8)
  1. DOXEPIN [Interacting]
     Indication: ILL-DEFINED DISORDER
  2. TETRAHYDROCANNABINOL [Interacting]
     Indication: ILL-DEFINED DISORDER
  3. NAPROXEN [Interacting]
     Indication: ILL-DEFINED DISORDER
  4. ACETAMINOPHEN [Interacting]
     Indication: ILL-DEFINED DISORDER
  5. CODEINE [Interacting]
     Indication: ILL-DEFINED DISORDER
  6. TRAMADOL HYDROCHLORIDE [Suspect]
     Indication: ILL-DEFINED DISORDER
     Route: 065
  7. ACETAMINOPHEN [Interacting]
  8. DIAZEPAM [Interacting]
     Indication: ILL-DEFINED DISORDER

REACTIONS (3)
  - TOXICITY TO VARIOUS AGENTS [None]
  - DRUG INTERACTION [None]
  - ACCIDENTAL OVERDOSE [None]
